FAERS Safety Report 11660201 (Version 2)
Quarter: 2015Q4

REPORT INFORMATION
  Report Type: Report from Study
  Country: US (occurrence: US)
  Receive Date: 20151026
  Receipt Date: 20151103
  Transmission Date: 20160304
  Serious: No
  Sender: FDA-Public Use
  Company Number: US-AMGEN-USASL2015107711

PATIENT
  Age: 64 Year
  Sex: Female

DRUGS (1)
  1. ENBREL [Suspect]
     Active Substance: ETANERCEPT
     Indication: RHEUMATOID ARTHRITIS
     Dosage: 50 MG, QWK
     Route: 065
     Dates: start: 201412

REACTIONS (7)
  - Underdose [Unknown]
  - Drug effect decreased [Unknown]
  - Device issue [Unknown]
  - Dyspnoea [Unknown]
  - Rash [Unknown]
  - Infection [Unknown]
  - Adverse reaction [Unknown]

NARRATIVE: CASE EVENT DATE: 20151006
